FAERS Safety Report 8451156-5 (Version None)
Quarter: 2012Q2

REPORT INFORMATION
  Report Type: 
  Country: None (occurrence: None)
  Receive Date: 20120620
  Receipt Date: 20120305
  Transmission Date: 20120825
  Serious: No
  Sender: FDA-Public Use
  Company Number: US-VERTEX PHARMACEUTICALS INC.-AE-2011-002383

PATIENT
  Sex: Female
  Weight: 72.64 kg

DRUGS (4)
  1. AMBIEN [Concomitant]
     Indication: INSOMNIA
  2. PEGASYS [Concomitant]
     Indication: HEPATITIS C
     Route: 058
     Dates: start: 20110928, end: 20111211
  3. INCIVEK [Suspect]
     Indication: HEPATITIS C
     Route: 048
     Dates: start: 20110928, end: 20111211
  4. RIBAVIRIN [Concomitant]
     Indication: HEPATITIS C
     Dates: start: 20110928, end: 20111211

REACTIONS (4)
  - DIARRHOEA [None]
  - PROCTALGIA [None]
  - FLATULENCE [None]
  - ABDOMINAL DISTENSION [None]
